FAERS Safety Report 17505329 (Version 5)
Quarter: 2020Q2

REPORT INFORMATION
  Report Type: Spontaneous
  Country: PR (occurrence: PR)
  Receive Date: 20200306
  Receipt Date: 20200612
  Transmission Date: 20200713
  Serious: No
  Sender: FDA-Public Use
  Company Number: PR-BRISTOL-MYERS SQUIBB COMPANY-BMS-2020-019623

PATIENT
  Sex: Female

DRUGS (1)
  1. ORENCIA [Suspect]
     Active Substance: ABATACEPT
     Indication: RHEUMATOID ARTHRITIS
     Dosage: 125 MILLIGRAM, QWK
     Route: 058
     Dates: start: 20200213

REACTIONS (8)
  - Drug ineffective [Unknown]
  - Fatigue [Unknown]
  - Pain [Unknown]
  - Emotional disorder [Unknown]
  - Asthenia [Unknown]
  - Disturbance in attention [Unknown]
  - Anger [Unknown]
  - Anxiety [Unknown]
